FAERS Safety Report 17073051 (Version 4)
Quarter: 2019Q4

REPORT INFORMATION
  Report Type: Report from Study
  Country: US (occurrence: US)
  Receive Date: 20191125
  Receipt Date: 20191231
  Transmission Date: 20200122
  Serious: Yes (Hospitalization)
  Sender: FDA-Public Use
  Company Number: US-ASTELLAS-2019US038082

PATIENT
  Sex: Male

DRUGS (2)
  1. ENZALUTAMIDE [Suspect]
     Active Substance: ENZALUTAMIDE
     Indication: PROSTATE CANCER
     Route: 048
     Dates: start: 20190831
  2. ENZALUTAMIDE [Suspect]
     Active Substance: ENZALUTAMIDE
     Route: 048

REACTIONS (10)
  - Anaemia [Recovering/Resolving]
  - Pain [Recovering/Resolving]
  - Purpura [Recovering/Resolving]
  - Asthenia [Recovering/Resolving]
  - Fatigue [Recovering/Resolving]
  - Urticaria [Not Recovered/Not Resolved]
  - Haemoglobin decreased [Recovering/Resolving]
  - Blister [Recovering/Resolving]
  - Dizziness [Not Recovered/Not Resolved]
  - Rash pruritic [Recovering/Resolving]
